FAERS Safety Report 4559174-4 (Version None)
Quarter: 2005Q1

REPORT INFORMATION
  Report Type: 
  Country: None (occurrence: None)
  Receive Date: 20050119
  Receipt Date: 20050105
  Transmission Date: 20050727
  Serious: No
  Sender: FDA-Public Use
  Company Number: 2005-00073

PATIENT
  Age: 48 Year
  Sex: Male

DRUGS (1)
  1. MINOXIDIL [Suspect]
     Indication: HYPERTENSION
     Dosage: 5 MG, DAILY, ORAL
     Route: 048
     Dates: start: 20020901, end: 20031001

REACTIONS (3)
  - HAEMODIALYSIS [None]
  - PLEURAL EFFUSION [None]
  - THERAPY NON-RESPONDER [None]
